FAERS Safety Report 10264718 (Version 1)
Quarter: 2014Q2

REPORT INFORMATION
  Report Type: Spontaneous
  Country: US (occurrence: None)
  Receive Date: 20140624
  Receipt Date: 20140624
  Transmission Date: 20141212
  Serious: Yes (Other)
  Sender: FDA-Public Use
  Company Number: 2382957

PATIENT
  Age: 51 Year
  Sex: Female

DRUGS (1)
  1. CIPROFLOXACIN IN 5% DEXTROSE [Suspect]
     Indication: PROPHYLAXIS
     Route: 041
     Dates: start: 20140529, end: 20140529

REACTIONS (5)
  - Urticaria [None]
  - Rash [None]
  - Inflammation [None]
  - Erythema [None]
  - Rash [None]
